FAERS Safety Report 12325216 (Version 2)
Quarter: 2016Q2

REPORT INFORMATION
  Report Type: Report from Study
  Country: US (occurrence: US)
  Receive Date: 20160502
  Receipt Date: 20160510
  Transmission Date: 20160815
  Serious: Yes (Other)
  Sender: FDA-Public Use
  Company Number: US-GILEAD-2016-0210290

PATIENT
  Age: 55 Year
  Sex: Male

DRUGS (1)
  1. LEDIPASVIR/SOFOSBUVIR [Suspect]
     Active Substance: LEDIPASVIR\SOFOSBUVIR
     Indication: CHRONIC HEPATITIS C
     Dosage: 1 DF, QD
     Route: 048
     Dates: start: 20160312

REACTIONS (17)
  - Eye discharge [Unknown]
  - Tremor [Recovering/Resolving]
  - Thinking abnormal [Unknown]
  - Otorrhoea [Unknown]
  - Muscle twitching [Unknown]
  - Hepatic cirrhosis [Unknown]
  - Back pain [Unknown]
  - Malaise [Unknown]
  - Gastrointestinal pain [Unknown]
  - Hernia [Unknown]
  - Rhinorrhoea [Unknown]
  - Increased upper airway secretion [Unknown]
  - Anxiety [Unknown]
  - Fatigue [Unknown]
  - Influenza like illness [Unknown]
  - Headache [Unknown]
  - Neck pain [Unknown]
